FAERS Safety Report 18765009 (Version 3)
Quarter: 2021Q2

REPORT INFORMATION
  Report Type: Spontaneous
  Country: US (occurrence: US)
  Receive Date: 20210120
  Receipt Date: 20210521
  Transmission Date: 20210717
  Serious: No
  Sender: FDA-Public Use
  Company Number: US-PFIZER INC-2021035054

PATIENT
  Age: 74 Year
  Sex: Male

DRUGS (4)
  1. VITAMIN C [Suspect]
     Active Substance: ASCORBIC ACID
     Dosage: UNK
  2. XELJANZ [Suspect]
     Active Substance: TOFACITINIB CITRATE
     Indication: RHEUMATOID ARTHRITIS
     Dosage: 5 MG, 2X/DAY
     Route: 048
  3. VITAMIN D [COLECALCIFEROL] [Suspect]
     Active Substance: CHOLECALCIFEROL
     Dosage: UNK
  4. ZINC. [Suspect]
     Active Substance: ZINC
     Dosage: UNK

REACTIONS (4)
  - Product storage error [Unknown]
  - COVID-19 [Unknown]
  - Poor quality product administered [Unknown]
  - Product physical issue [Unknown]
